FAERS Safety Report 7927810-8 (Version None)
Quarter: 2011Q4

REPORT INFORMATION
  Report Type: 
  Country: None (occurrence: None)
  Receive Date: 20111118
  Receipt Date: 20111114
  Transmission Date: 20120403
  Serious: Yes (Hospitalization)
  Sender: FDA-Public Use
  Company Number: GB-BAYER-2011-110614

PATIENT
  Age: 68 Year
  Sex: Female
  Weight: 79 kg

DRUGS (8)
  1. RIVAROXABAN [Suspect]
     Indication: THROMBOSIS PROPHYLAXIS
     Dosage: 10 MG, QD
     Route: 048
     Dates: start: 20101002, end: 20101004
  2. MIRTAZAPINE [Suspect]
     Indication: HORMONE REPLACEMENT THERAPY
     Dosage: 45 MG, QD
     Route: 048
  3. RAMIPRIL [Concomitant]
     Dosage: 5 MG, UNK
     Route: 048
  4. RIVAROXABAN [Suspect]
     Indication: HIP ARTHROPLASTY
  5. ACETYLSALICYLIC ACID SRT [Suspect]
     Dosage: 75 MG, QD
     Route: 048
     Dates: end: 20101001
  6. AMLODIPINE [Concomitant]
     Dosage: 5 MG, QD
     Route: 048
  7. ATENOLOL [Concomitant]
     Dosage: 100 MG, QD
     Route: 048
  8. LEVOTHYROXINE SODIUM [Concomitant]
     Dosage: 100 ?G, QD
     Route: 048

REACTIONS (4)
  - HIATUS HERNIA [None]
  - HYPOTENSION [None]
  - HAEMOGLOBIN DECREASED [None]
  - OESOPHAGITIS [None]
